FAERS Safety Report 24422146 (Version 2)
Quarter: 2024Q4

REPORT INFORMATION
  Report Type: Spontaneous
  Country: CA (occurrence: CA)
  Receive Date: 20241010
  Receipt Date: 20241028
  Transmission Date: 20250115
  Serious: Yes (Other)
  Sender: REGENERON
  Company Number: CA-BAYER-2024A141586

PATIENT
  Sex: Female

DRUGS (2)
  1. EYLEA [Suspect]
     Active Substance: AFLIBERCEPT
     Indication: Product used for unknown indication
     Dosage: UNK; SOLUTION FOR INJECTION; 40 MG/ML
     Dates: start: 2021
  2. ADVIL [Concomitant]
     Active Substance: IBUPROFEN
     Indication: Product used for unknown indication
     Dosage: 400 MG

REACTIONS (6)
  - Glaucoma [Unknown]
  - Eye haemorrhage [Recovered/Resolved]
  - Hypoaesthesia [Recovered/Resolved]
  - Facial pain [Recovered/Resolved]
  - Swelling of eyelid [Recovered/Resolved]
  - Product administered at inappropriate site [Recovered/Resolved]
